FAERS Safety Report 18482219 (Version 1)
Quarter: 2020Q4

REPORT INFORMATION
  Report Type: Spontaneous
  Country: US (occurrence: US)
  Receive Date: 20201109
  Receipt Date: 20201109
  Transmission Date: 20210114
  Serious: No
  Sender: FDA-Public Use
  Company Number: US-FOUNDATIONCONSUMERHC-2020-US-013930

PATIENT
  Age: 33 Year
  Sex: Female
  Weight: 92.99 kg

DRUGS (3)
  1. AMOLODIPINE [Concomitant]
  2. MULTIVITAMIN [Concomitant]
     Active Substance: VITAMINS
  3. PLAN B ONE-STEP [Suspect]
     Active Substance: LEVONORGESTREL
     Indication: POST COITAL CONTRACEPTION
     Dosage: 1.5MG TABLET X 2
     Route: 048
     Dates: start: 202005, end: 20200626

REACTIONS (3)
  - Menstruation irregular [Not Recovered/Not Resolved]
  - Breast tenderness [Not Recovered/Not Resolved]
  - Fatigue [Recovered/Resolved]

NARRATIVE: CASE EVENT DATE: 202005
